FAERS Safety Report 7873483-2 (Version None)
Quarter: 2011Q4

REPORT INFORMATION
  Report Type: 
  Country: None (occurrence: None)
  Receive Date: 20111030
  Receipt Date: 20110504
  Transmission Date: 20120403
  Serious: No
  Sender: FDA-Public Use
  Company Number: US-AMGEN-USASP2011023031

PATIENT
  Age: 69 Year
  Sex: Female
  Weight: 44.444 kg

DRUGS (15)
  1. METHOTREXATE [Concomitant]
  2. AMITRIPTYLINE HCL [Concomitant]
  3. CITRACAL + D                       /01438101/ [Concomitant]
     Route: 048
  4. FOLIC ACID [Concomitant]
     Dosage: 1 MG, UNK
     Route: 048
  5. PLAQUENIL [Concomitant]
     Dosage: 200 MG, UNK
     Route: 048
  6. TYLENOL (CAPLET) [Concomitant]
     Dosage: 325 MG, UNK
     Route: 048
  7. ENBREL [Suspect]
     Indication: PRODUCT USED FOR UNKNOWN INDICATION
     Dosage: 50 MG, QWK
     Route: 058
  8. VITAMIN D [Concomitant]
     Dosage: 1000 IU, UNK
     Route: 048
  9. FLAXSEED OIL [Concomitant]
  10. ESTER C                            /00008001/ [Concomitant]
     Route: 048
  11. ECHINACEA                          /01323501/ [Concomitant]
  12. ONE DAILY                          /01824901/ [Concomitant]
     Route: 048
  13. LEVOXYL [Concomitant]
     Route: 048
  14. FISH OIL [Concomitant]
     Route: 048
  15. STOOL SOFTENER [Concomitant]
     Route: 048

REACTIONS (3)
  - ASTHENIA [None]
  - COUGH [None]
  - OEDEMA PERIPHERAL [None]
